FAERS Safety Report 17199062 (Version 2)
Quarter: 2021Q1

REPORT INFORMATION
  Report Type: Spontaneous
  Country: CH (occurrence: CH)
  Receive Date: 20191225
  Receipt Date: 20210310
  Transmission Date: 20210419
  Serious: Yes (Other)
  Sender: FDA-Public Use
  Company Number: CH-BAUSCH-BL-2019-065980

PATIENT
  Age: 56 Year
  Sex: Female

DRUGS (23)
  1. FLUOROURACIL. [Suspect]
     Active Substance: FLUOROURACIL
     Route: 013
     Dates: start: 20191003, end: 20191004
  2. MITOMYCIN. [Suspect]
     Active Substance: MITOMYCIN
     Route: 013
     Dates: start: 20191003, end: 20191004
  3. METHOTREXATE. [Suspect]
     Active Substance: METHOTREXATE
     Route: 013
     Dates: start: 20190829, end: 20190830
  4. FLUOROURACIL. [Suspect]
     Active Substance: FLUOROURACIL
     Indication: ANAL CANCER RECURRENT
     Dosage: CYCLICAL, CURATIVE, CHEMORADIOTHERAPY, 2 CYCLES
     Route: 065
     Dates: start: 2017, end: 2017
  5. FLUOROURACIL. [Suspect]
     Active Substance: FLUOROURACIL
     Indication: ANAL SQUAMOUS CELL CARCINOMA
     Route: 013
     Dates: start: 20190725, end: 20190726
  6. OXALIPLATIN. [Suspect]
     Active Substance: OXALIPLATIN
     Route: 013
     Dates: start: 20190829, end: 20190830
  7. OXALIPLATIN. [Suspect]
     Active Substance: OXALIPLATIN
     Route: 013
     Dates: start: 20191003, end: 20191004
  8. METHOTREXATE. [Suspect]
     Active Substance: METHOTREXATE
     Indication: ANAL CANCER RECURRENT
     Route: 013
     Dates: start: 20190725, end: 20190726
  9. BLEOMYCIN SULFATE [Suspect]
     Active Substance: BLEOMYCIN SULFATE
     Route: 042
     Dates: start: 20191003, end: 20191003
  10. BLEOMYCIN SULFATE [Suspect]
     Active Substance: BLEOMYCIN SULFATE
     Dosage: DOSE RE?INTRODUCED
     Route: 042
  11. OXALIPLATIN. [Suspect]
     Active Substance: OXALIPLATIN
     Indication: ANAL CANCER RECURRENT
     Route: 013
     Dates: start: 20190725, end: 20190726
  12. FLUOROURACIL. [Suspect]
     Active Substance: FLUOROURACIL
     Dosage: DOSE RE?INTRODUCED
     Route: 013
  13. BLEOMYCIN SULFATE [Suspect]
     Active Substance: BLEOMYCIN SULFATE
     Indication: ANAL SQUAMOUS CELL CARCINOMA
     Route: 042
     Dates: start: 20190829, end: 20190829
  14. VISIPAQUE [Suspect]
     Active Substance: IODIXANOL
     Indication: ANAL CANCER RECURRENT
     Dosage: 270 G/ML, TOTAL
     Route: 013
     Dates: start: 20191003, end: 20191003
  15. BLEOMYCIN SULFATE [Suspect]
     Active Substance: BLEOMYCIN SULFATE
     Indication: ANAL CANCER RECURRENT
     Dosage: 10 MG, TOTAL
     Route: 042
     Dates: start: 20190725, end: 20190725
  16. OXALIPLATIN. [Suspect]
     Active Substance: OXALIPLATIN
     Dosage: DOSE RE?INTRODUCED
     Route: 013
  17. MITOMYCIN. [Suspect]
     Active Substance: MITOMYCIN
     Dosage: DOSE RE?INTRODUCED
     Route: 065
  18. METHOTREXATE. [Suspect]
     Active Substance: METHOTREXATE
     Route: 013
     Dates: start: 20191003, end: 20191004
  19. METHOTREXATE. [Suspect]
     Active Substance: METHOTREXATE
     Dosage: DOSE RE?INTRODUCED
     Route: 013
  20. FLUOROURACIL. [Suspect]
     Active Substance: FLUOROURACIL
     Route: 013
     Dates: start: 20190829, end: 20190830
  21. MITOMYCIN. [Suspect]
     Active Substance: MITOMYCIN
     Indication: ANAL SQUAMOUS CELL CARCINOMA
     Dosage: CYCLICAL, CURATIVE, CHEMOTHERAPY, 2 CYCLES
     Route: 065
     Dates: start: 2017, end: 2017
  22. MITOMYCIN. [Suspect]
     Active Substance: MITOMYCIN
     Indication: ANAL CANCER RECURRENT
     Route: 013
     Dates: start: 20190725, end: 20190726
  23. VISIPAQUE [Suspect]
     Active Substance: IODIXANOL
     Dosage: DOSE RE?INTRODUCED
     Route: 013

REACTIONS (4)
  - Haemorrhage [Unknown]
  - Livedo reticularis [Recovered/Resolved]
  - Necrosis [Unknown]
  - Livedo reticularis [Recovered/Resolved]

NARRATIVE: CASE EVENT DATE: 20190829
